FAERS Safety Report 7513413-6 (Version None)
Quarter: 2011Q2

REPORT INFORMATION
  Report Type: 
  Country: None (occurrence: None)
  Receive Date: 20110531
  Receipt Date: 20110517
  Transmission Date: 20111010
  Serious: Yes (Hospitalization)
  Sender: FDA-Public Use
  Company Number: GB-UCBSA-033027

PATIENT
  Sex: Male

DRUGS (3)
  1. METHOTREXATE [Concomitant]
     Dates: start: 20070705
  2. CERTOLIZUMAB [Suspect]
     Indication: SERONEGATIVE ARTHRITIS
     Route: 058
     Dates: start: 20100325
  3. HYDROXYCHLOROQUINE SULFATE [Concomitant]
     Dates: start: 20101209

REACTIONS (2)
  - VIITH NERVE PARALYSIS [None]
  - EAR INFECTION [None]
